FAERS Safety Report 8330758-0 (Version None)
Quarter: 2012Q2

REPORT INFORMATION
  Report Type: 
  Country: None (occurrence: None)
  Receive Date: 20120502
  Receipt Date: 20120410
  Transmission Date: 20120825
  Serious: No
  Sender: FDA-Public Use
  Company Number: US-AMGEN-USASP2012022528

PATIENT
  Age: 60 Year
  Sex: Male

DRUGS (1)
  1. ENBREL [Suspect]
     Indication: PSORIASIS
     Dosage: 50 MG, 2 TIMES/WK
     Dates: start: 20120206

REACTIONS (6)
  - EYELID IRRITATION [None]
  - BURNING SENSATION [None]
  - RASH ERYTHEMATOUS [None]
  - FEELING HOT [None]
  - DRUG INEFFECTIVE [None]
  - ERYTHEMA OF EYELID [None]
